FAERS Safety Report 6993202-1 (Version None)
Quarter: 2010Q3

REPORT INFORMATION
  Report Type: 
  Country: None (occurrence: None)
  Receive Date: 20100917
  Receipt Date: 20100412
  Transmission Date: 20110219
  Serious: Yes (Other)
  Sender: FDA-Public Use
  Company Number: US-ASTRAZENECA-2009UW15602

PATIENT
  Age: 40 Year
  Sex: Female

DRUGS (7)
  1. SEROQUEL [Suspect]
     Dosage: 200 MG TO 400 MG
     Route: 048
     Dates: start: 20030104
  2. PROZAC [Concomitant]
     Dosage: 20 MG TO 40 MG
     Route: 048
     Dates: start: 20030101
  3. ALTASE [Concomitant]
     Dates: start: 20030101
  4. ATIVAN [Concomitant]
     Route: 048
     Dates: start: 20030101
  5. LIPITOR [Concomitant]
     Indication: HYPERTRIGLYCERIDAEMIA
     Dosage: 20 MG TO 40 MG
     Route: 048
     Dates: start: 20030101
  6. NORVASC [Concomitant]
     Route: 048
     Dates: start: 20040101
  7. TRICOR [Concomitant]
     Indication: HYPERTRIGLYCERIDAEMIA
     Dates: start: 20050801

REACTIONS (4)
  - DIABETES MELLITUS [None]
  - DIABETES MELLITUS INADEQUATE CONTROL [None]
  - DIABETIC KETOACIDOSIS [None]
  - TYPE 2 DIABETES MELLITUS [None]
